FAERS Safety Report 7455346-X (Version None)
Quarter: 2011Q2

REPORT INFORMATION
  Report Type: 
  Country: None (occurrence: None)
  Receive Date: 20110503
  Receipt Date: 20110412
  Transmission Date: 20111010
  Serious: Yes (Death, Life-Threatening, Hospitalization, Disabling)
  Sender: FDA-Public Use
  Company Number: DE-BAYER-2010-003610

PATIENT
  Age: 61 Year
  Sex: Male
  Weight: 176 kg

DRUGS (16)
  1. ALDACTONE [Concomitant]
     Indication: RENAL FAILURE CHRONIC
     Dosage: 50 MG, UNK
     Route: 048
     Dates: start: 20050601
  2. GENTAMICIN SULFATE [Concomitant]
     Indication: HORDEOLUM
     Dosage: OINTMENT, PRN
     Route: 061
     Dates: start: 20101116
  3. BLINDED SORAFENIB (RAF KINASE INHIBITOR) [Suspect]
     Indication: HEPATIC NEOPLASM MALIGNANT
     Dosage: 150 MG, QD
     Route: 048
     Dates: start: 20100621, end: 20101205
  4. RANTEC [Concomitant]
     Indication: GASTRITIS PROPHYLAXIS
     Dosage: 300 MG, UNK
     Route: 048
     Dates: start: 20100601
  5. BETALIN [Concomitant]
     Indication: PROPHYLAXIS
     Dosage: 100 MG, UNK
     Route: 048
     Dates: start: 20071001
  6. LASIX [Concomitant]
     Indication: ASCITES
     Dosage: 20 MG, UNK
     Route: 048
     Dates: start: 20101206
  7. ANTIHISTAMINES [Concomitant]
     Indication: PRURITUS
  8. DOCITON [Suspect]
     Indication: VARICES OESOPHAGEAL
     Dosage: 60 MG, UNK
     Route: 048
     Dates: start: 20070101
  9. SORAFENIB (RAF KINASE INHIBITOR) [Suspect]
     Indication: HEPATIC NEOPLASM MALIGNANT
     Dosage: 400 MG, BID
     Route: 048
     Dates: start: 20100621, end: 20101208
  10. KANAVIT [Concomitant]
     Indication: COAGULOPATHY
     Dosage: 20 MG
     Route: 048
     Dates: start: 20070101
  11. PANTOZOL [Concomitant]
     Dosage: 40 MG
  12. CONTRAST MEDIA [Concomitant]
     Indication: COMPUTERISED TOMOGRAM
     Dosage: UNK
     Dates: start: 20100108
  13. BLINDED SORAFENIB (RAF KINASE INHIBITOR) [Suspect]
     Dosage: 100 MG, QD
     Route: 048
     Dates: start: 20101206, end: 20101208
  14. LACTULOSE [Concomitant]
     Indication: ENCEPHALOPATHY
     Dosage: UNK UNK, PRN
     Route: 048
     Dates: start: 20071001
  15. MAGNESIUM VERLA [Concomitant]
     Indication: BLOOD MAGNESIUM DECREASED
     Dosage: 3.3
     Route: 048
     Dates: start: 20100828
  16. ZINLORAT [Concomitant]
     Indication: PROPHYLAXIS
     Dosage: 20 MG, UNK
     Route: 048
     Dates: start: 20071001

REACTIONS (3)
  - GENERAL PHYSICAL HEALTH DETERIORATION [None]
  - JAUNDICE [None]
  - HYPERBILIRUBINAEMIA [None]
